FAERS Safety Report 7762128-8 (Version None)
Quarter: 2011Q3

REPORT INFORMATION
  Report Type: 
  Country: None (occurrence: None)
  Receive Date: 20110920
  Receipt Date: 20110908
  Transmission Date: 20111222
  Serious: No
  Sender: FDA-Public Use
  Company Number: US-JNJFOC-20110905686

PATIENT
  Sex: Female
  Weight: 72.58 kg

DRUGS (6)
  1. FENTANYL-100 [Suspect]
     Indication: NECK PAIN
     Dosage: NDC NUMBER: 01781-7242-55
     Route: 062
  2. FENTANYL-100 [Suspect]
     Indication: MULTIPLE SCLEROSIS
     Dosage: NDC NUMBER: 01781-7242-55
     Route: 062
  3. EFFEXOR XR [Concomitant]
     Indication: DEPRESSION
     Route: 048
  4. FENTANYL-100 [Suspect]
     Indication: NECK PAIN
     Route: 062
  5. FENTANYL-100 [Suspect]
     Indication: MULTIPLE SCLEROSIS
     Route: 062
  6. SEROQUEL [Concomitant]
     Indication: DEPRESSION
     Route: 048

REACTIONS (4)
  - PRODUCT ADHESION ISSUE [None]
  - DRUG PRESCRIBING ERROR [None]
  - INAPPROPRIATE SCHEDULE OF DRUG ADMINISTRATION [None]
  - PRODUCT QUALITY ISSUE [None]
